FAERS Safety Report 20491522 (Version 1)
Quarter: 2022Q1

REPORT INFORMATION
  Report Type: Spontaneous
  Country: CN (occurrence: CN)
  Receive Date: 20220218
  Receipt Date: 20220218
  Transmission Date: 20220424
  Serious: Yes (Life-Threatening, Hospitalization)
  Sender: FDA-Public Use
  Company Number: CN-CELGENE-CHN-20220205308

PATIENT
  Age: 36 Year
  Sex: Female
  Weight: 43 kg

DRUGS (4)
  1. ABRAXANE [Suspect]
     Active Substance: PACLITAXEL
     Indication: Gastric cancer
     Route: 041
     Dates: start: 20211221, end: 20211221
  2. ABRAXANE [Suspect]
     Active Substance: PACLITAXEL
     Route: 041
     Dates: start: 20220121, end: 20220125
  3. NIVOLUMAB [Suspect]
     Active Substance: NIVOLUMAB
     Indication: Gastric cancer
     Route: 041
     Dates: start: 20211221, end: 20211221
  4. TEGAFUR [Concomitant]
     Active Substance: TEGAFUR
     Indication: Product used for unknown indication
     Route: 048
     Dates: start: 20211221, end: 20220104

REACTIONS (1)
  - Encephalitis autoimmune [Recovered/Resolved with Sequelae]

NARRATIVE: CASE EVENT DATE: 20220121
